FAERS Safety Report 6895465 (Version 5)
Quarter: 2012Q4

REPORT INFORMATION
  Report Type: 
  Country: US (occurrence: US)
  Receive Date: 20090129
  Receipt Date: 20121112
  Transmission Date: 20130627
  Serious: Yes (Hospitalization)
  Sender: FDA-Public Use
  Company Number: US-BIOGENIDEC-2009BI002491

PATIENT
  Age: 47 Year
  Sex: Female

DRUGS (5)
  1. AVONEX [Suspect]
     Indication: MULTIPLE SCLEROSIS
     Route: 030
     Dates: start: 20020301, end: 20050331
  2. AVONEX [Suspect]
     Indication: MULTIPLE SCLEROSIS
     Route: 030
     Dates: start: 20050815, end: 20081119
  3. AVONEX [Suspect]
     Indication: MULTIPLE SCLEROSIS
     Route: 030
  4. AVONEX [Suspect]
     Indication: MULTIPLE SCLEROSIS
     Route: 030
     Dates: start: 20091124, end: 20120501
  5. EPIDURAL [Concomitant]

REACTIONS (7)
  - Osteonecrosis [Recovered/Resolved]
  - Intervertebral disc protrusion [Unknown]
  - Gait disturbance [Unknown]
  - Multiple sclerosis [Unknown]
  - Sluggishness [Unknown]
  - Feeling hot [Not Recovered/Not Resolved]
  - Influenza like illness [Unknown]
